FAERS Safety Report 14534270 (Version 4)
Quarter: 2018Q2

REPORT INFORMATION
  Report Type: Report from Study
  Country: RU (occurrence: RU)
  Receive Date: 20180215
  Receipt Date: 20180510
  Transmission Date: 20180711
  Serious: Yes (Death, Hospitalization)
  Sender: FDA-Public Use
  Company Number: PHHY2018RU021108

PATIENT
  Age: 71 Year
  Sex: Male
  Weight: 63 kg

DRUGS (6)
  1. ENTRESTO [Suspect]
     Active Substance: SACUBITRIL\VALSARTAN
     Indication: CARDIAC FAILURE
     Dosage: 50 MG (SACUBITRIL 24 MG/VALSARTAN 26 MG), BID
     Route: 048
     Dates: start: 20171122, end: 20180205
  2. FUROSEMID [Concomitant]
     Active Substance: FUROSEMIDE
     Indication: CARDIAC FAILURE
     Dosage: 100 MG, UNK
     Route: 065
     Dates: start: 20171108
  3. EPLERENONE. [Concomitant]
     Active Substance: EPLERENONE
     Indication: PRODUCT USED FOR UNKNOWN INDICATION
     Dosage: UNK
     Route: 065
     Dates: end: 20180205
  4. ASPIRIN. [Concomitant]
     Active Substance: ASPIRIN
     Indication: MYOCARDIAL ISCHAEMIA
     Dosage: 100 MG, UNK
     Route: 065
     Dates: start: 20110101
  5. CLOPIDOGREL [Concomitant]
     Active Substance: CLOPIDOGREL BISULFATE
     Indication: MYOCARDIAL ISCHAEMIA
     Dosage: 75 MG, UNK
     Route: 065
     Dates: start: 20171108
  6. DIGOXIN. [Concomitant]
     Active Substance: DIGOXIN
     Indication: ATRIAL FIBRILLATION
     Dosage: 0.125 MG, UNK
     Route: 065
     Dates: start: 20140101

REACTIONS (10)
  - Asthenia [Fatal]
  - Atrial fibrillation [Fatal]
  - Dyspnoea [Fatal]
  - Cardiac arrest [Fatal]
  - Circulatory collapse [Fatal]
  - Heart rate increased [Fatal]
  - Cardiac failure [Fatal]
  - Hypotension [Fatal]
  - Myocardial fibrosis [Fatal]
  - Blood creatinine increased [Recovering/Resolving]

NARRATIVE: CASE EVENT DATE: 20171122
